FAERS Safety Report 15000376 (Version 1)
Quarter: 2018Q2

REPORT INFORMATION
  Report Type: Spontaneous
  Country: DE (occurrence: DE)
  Receive Date: 20180612
  Receipt Date: 20180612
  Transmission Date: 20180711
  Serious: Yes (Hospitalization, Other)
  Sender: FDA-Public Use
  Company Number: DE-PFIZER INC-2018232337

PATIENT
  Age: 85 Year
  Sex: Male
  Weight: 61 kg

DRUGS (10)
  1. DUODART [Concomitant]
     Active Substance: DUTASTERIDE\TAMSULOSIN
     Dosage: 0.5|0.4 MG, 1-0-0-0, CAPSULES
     Route: 048
  2. ZOLPIDEM [Concomitant]
     Active Substance: ZOLPIDEM\ZOLPIDEM TARTRATE
     Dosage: 10 MG, 0-0-0-1, TABLETS
     Route: 048
  3. METOPROLOL. [Concomitant]
     Active Substance: METOPROLOL
     Dosage: 95 MG, 1-0-0.5-0, TABLETS
     Route: 048
  4. FUROSEMIDE. [Suspect]
     Active Substance: FUROSEMIDE
     Dosage: 125 MG, 1-1-1-0, TABLETS
     Route: 048
  5. ALLOPURINOL. [Concomitant]
     Active Substance: ALLOPURINOL
     Dosage: 100 MG, 1-0-0-0, TABLETS
     Route: 048
  6. MARCUMAR [Concomitant]
     Active Substance: PHENPROCOUMON
     Dosage: ACCORDING TO INR, TABLETS
     Route: 048
  7. EPLERENONE. [Suspect]
     Active Substance: EPLERENONE
     Dosage: 25 MG, AS PER SCHEME, TABLETS
     Route: 048
  8. OMEPRAZOL [Concomitant]
     Active Substance: OMEPRAZOLE
     Dosage: 40 MG, 1-0-1-0, TABLETS
     Route: 048
  9. RAMIPRIL. [Concomitant]
     Active Substance: RAMIPRIL
     Dosage: 2.5 MG, 1-0-0-0, TABLETS
     Route: 048
  10. DIGITOXIN [Concomitant]
     Active Substance: DIGITOXIN
     Dosage: 0.1 MG, AS PER SCHEME, TABLETS
     Route: 048

REACTIONS (7)
  - Cardiac failure [Unknown]
  - Nocturia [Unknown]
  - Hypertension [Unknown]
  - Oedema peripheral [Unknown]
  - Ascites [Unknown]
  - Medication monitoring error [Unknown]
  - Dyspnoea [Unknown]
